FAERS Safety Report 7058645-9 (Version None)
Quarter: 2010Q4

REPORT INFORMATION
  Report Type: 
  Country: None (occurrence: None)
  Receive Date: 20101022
  Receipt Date: 20101013
  Transmission Date: 20110411
  Serious: Yes (Hospitalization)
  Sender: FDA-Public Use
  Company Number: Z0004165B

PATIENT
  Sex: Female
  Weight: 63.5 kg

DRUGS (6)
  1. PAZOPANIB [Suspect]
     Indication: RENAL CELL CARCINOMA
     Dosage: 400MG PER DAY
     Route: 048
     Dates: start: 20091216, end: 20100528
  2. DECORTIN H [Concomitant]
     Indication: PNEUMONIA
     Dosage: 30MG PER DAY
     Route: 048
     Dates: start: 20100526
  3. TOREM [Concomitant]
     Indication: HYPERTENSION
     Dosage: 2.5MG PER DAY
     Route: 048
     Dates: start: 20100526
  4. COTRIM [Concomitant]
     Indication: PROPHYLAXIS
     Dosage: 960MG THREE TIMES PER WEEK
     Route: 048
     Dates: start: 20100526
  5. CLEXANE [Concomitant]
     Indication: THROMBOSIS PROPHYLAXIS
     Dosage: .6MG PER DAY
     Route: 058
     Dates: start: 20100526
  6. KALINOR BRAUSE [Concomitant]
     Indication: PROPHYLAXIS
     Dosage: 40MMOL AS REQUIRED
     Route: 048
     Dates: start: 20100526

REACTIONS (12)
  - ALANINE AMINOTRANSFERASE INCREASED [None]
  - ASPARTATE AMINOTRANSFERASE INCREASED [None]
  - BLOOD GLUCOSE INCREASED [None]
  - DECREASED APPETITE [None]
  - FATIGUE [None]
  - HAEMATOCRIT DECREASED [None]
  - HAEMOGLOBIN DECREASED [None]
  - HEPATITIS [None]
  - LACUNAR INFARCTION [None]
  - PNEUMOCYSTIS JIROVECI PNEUMONIA [None]
  - RED BLOOD CELL COUNT DECREASED [None]
  - VERTIGO [None]
